FAERS Safety Report 9689945 (Version 1)
Quarter: 2013Q4

REPORT INFORMATION
  Report Type: Spontaneous
  Country: US (occurrence: US)
  Receive Date: 20131115
  Receipt Date: 20131115
  Transmission Date: 20140711
  Serious: No
  Sender: FDA-Public Use
  Company Number: US-PFIZER INC-2013325707

PATIENT
  Age: 55 Year
  Sex: Female

DRUGS (13)
  1. CELEBREX [Suspect]
     Dosage: UNK
  2. MORPHINE SULFATE [Suspect]
     Dosage: UNK
  3. NAPROXEN SODIUM [Suspect]
     Dosage: UNK
  4. ETODOLAC [Suspect]
     Dosage: UNK
  5. DIAZEPAM [Suspect]
     Dosage: UNK
  6. ASA [Suspect]
     Dosage: UNK
  7. VIOXX [Suspect]
     Dosage: UNK
  8. IMITREX [Suspect]
     Dosage: UNK
  9. DEMEROL [Suspect]
     Dosage: UNK
  10. MOTRIN [Suspect]
     Dosage: UNK
  11. DEPAKOTE [Suspect]
     Dosage: UNK
  12. KEFLEX [Suspect]
     Dosage: UNK
  13. CAFERGOT [Suspect]
     Dosage: UNK

REACTIONS (1)
  - Drug hypersensitivity [Unknown]
